FAERS Safety Report 9079681 (Version 1)
Quarter: 2013Q1

REPORT INFORMATION
  Report Type: Spontaneous
  Country: US (occurrence: US)
  Receive Date: 20130130
  Receipt Date: 20130130
  Transmission Date: 20140127
  Serious: Yes (Hospitalization, Other)
  Sender: FDA-Public Use
  Company Number: US-PURDUE-USA-2013-0097764

PATIENT
  Sex: Male

DRUGS (1)
  1. BUTRANS [Suspect]
     Indication: PRODUCT USED FOR UNKNOWN INDICATION
     Dosage: 5 MCG, DAILY
     Route: 062

REACTIONS (4)
  - Oedema mouth [Unknown]
  - Throat tightness [Unknown]
  - Pharyngeal oedema [Unknown]
  - Swollen tongue [Unknown]
